FAERS Safety Report 5828844-X (Version None)
Quarter: 2008Q3

REPORT INFORMATION
  Report Type: 
  Country: None (occurrence: None)
  Receive Date: 20080731
  Receipt Date: 20080721
  Transmission Date: 20090109
  Serious: Yes (Other)
  Sender: FDA-Public Use
  Company Number: US-JNJFOC-20080501192

PATIENT
  Sex: Male
  Weight: 67.13 kg

DRUGS (1)
  1. REMICADE [Suspect]
     Indication: RHEUMATOID ARTHRITIS
     Dosage: 3 YEARS  DOSE 300-400-500 MG
     Route: 042

REACTIONS (2)
  - METASTASIS [None]
  - SQUAMOUS CELL CARCINOMA [None]
